FAERS Safety Report 9133389 (Version 1)
Quarter: 2013Q1

REPORT INFORMATION
  Report Type: Spontaneous
  Country: CA (occurrence: CA)
  Receive Date: 20130125
  Receipt Date: 20130125
  Transmission Date: 20140127
  Serious: Yes (Life-Threatening, Hospitalization)
  Sender: FDA-Public Use
  Company Number: CA-B.I. PHARMACEUTICALS,INC./RIDGEFIELD-2013-CN-00107CN

PATIENT
  Age: 84 Year
  Sex: Female
  Weight: 81 kg

DRUGS (9)
  1. PRADAX [Suspect]
     Dosage: 220 MG
     Route: 048
  2. ACETYLSALICYLIC ACID [Suspect]
     Dosage: 80 MG
     Route: 048
  3. ATORVASTATIN CALCIUM [Concomitant]
  4. CYANOCOBALAMIN [Concomitant]
  5. FUROSEMIDE [Concomitant]
  6. IRON [Concomitant]
  7. METOPROLOL [Concomitant]
  8. RABEPRAZOLE [Concomitant]
  9. RAMIPRIL [Concomitant]

REACTIONS (2)
  - Gastrointestinal haemorrhage [Recovered/Resolved]
  - Drug interaction [Recovered/Resolved]
